FAERS Safety Report 8325129-7 (Version None)
Quarter: 2012Q2

REPORT INFORMATION
  Report Type: 
  Country: None (occurrence: None)
  Receive Date: 20120501
  Receipt Date: 20120222
  Transmission Date: 20120825
  Serious: No
  Sender: FDA-Public Use
  Company Number: US-ABBOTT-12P-163-0908247-00

PATIENT
  Weight: 63.56 kg

DRUGS (3)
  1. CREON [Suspect]
     Dosage: 1 BEFORE MEALS, 1 IN MIDDLE OF EACH MEAL
     Dates: start: 20120201
  2. THYROID TAB [Concomitant]
     Indication: PRODUCT USED FOR UNKNOWN INDICATION
  3. CREON [Suspect]
     Indication: PANCREATITIS
     Dosage: 1 BEFORE EACH MEAL
     Dates: start: 20110101, end: 20120201

REACTIONS (2)
  - DIARRHOEA [None]
  - DRUG INEFFECTIVE [None]
